FAERS Safety Report 6214108-1 (Version None)
Quarter: 2009Q2

REPORT INFORMATION
  Report Type: 
  Country: None (occurrence: None)
  Receive Date: 20090604
  Receipt Date: 20090528
  Transmission Date: 20091009
  Serious: Yes (Other)
  Sender: FDA-Public Use
  Company Number: GB-ROCHE-635184

PATIENT
  Sex: Female
  Weight: 117.5 kg

DRUGS (6)
  1. ORLISTAT [Suspect]
     Indication: OBESITY
     Route: 048
     Dates: start: 20090325
  2. VENTOLIN [Concomitant]
     Indication: ASTHMA
     Dosage: TAKEN AS REQUIRED
     Route: 055
  3. SERETIDE [Concomitant]
     Indication: ASTHMA
     Dosage: TAKES 2 PUFFS IN THE MORNING
     Route: 055
  4. NASONEX [Concomitant]
     Route: 055
  5. LORATADINE [Concomitant]
     Route: 048
  6. SINGULAIR [Concomitant]

REACTIONS (1)
  - HYPOTHYROIDISM [None]
